FAERS Safety Report 4532788-3 (Version None)
Quarter: 2004Q4

REPORT INFORMATION
  Report Type: 
  Country: None (occurrence: None)
  Receive Date: 20041220
  Receipt Date: 20041202
  Transmission Date: 20050328
  Serious: Yes (Other)
  Sender: FDA-Public Use
  Company Number: DE-YAMANOUCHI-YEHQ20040449

PATIENT
  Age: 77 Year
  Sex: Female

DRUGS (6)
  1. VESIKUR () [Suspect]
     Indication: HYPERTONIC BLADDER
     Dosage: 5 MG PO
     Route: 048
     Dates: start: 20040926, end: 20041001
  2. PRAVASTATIN SODIUM [Concomitant]
  3. LEVOTHYROXINE SODIUM [Concomitant]
  4. FOSINOPRIL SODIUM [Concomitant]
  5. DIAZEPAM [Concomitant]
  6. MOXONIDINE [Concomitant]

REACTIONS (6)
  - ACCOMMODATION DISORDER [None]
  - ARRHYTHMIA [None]
  - CARDIOVASCULAR DISORDER [None]
  - CONSTIPATION [None]
  - DIZZINESS [None]
  - TREMOR [None]
